FAERS Safety Report 7918016-7 (Version None)
Quarter: 2011Q4

REPORT INFORMATION
  Report Type: 
  Country: None (occurrence: None)
  Receive Date: 20111116
  Receipt Date: 20111103
  Transmission Date: 20120403
  Serious: Yes (Other)
  Sender: FDA-Public Use
  Company Number: GB-MERCK-1110GBR00069

PATIENT
  Age: 65 Year
  Sex: Female
  Weight: 68 kg

DRUGS (7)
  1. COZAAR [Concomitant]
     Route: 048
     Dates: start: 20110628
  2. DICLOFENAC SODIUM [Concomitant]
     Route: 065
     Dates: start: 20111003
  3. ZOCOR [Suspect]
     Indication: ILL-DEFINED DISORDER
     Route: 048
     Dates: start: 20110628
  4. ASPIRIN [Concomitant]
     Route: 065
     Dates: start: 20110628
  5. DIPYRIDAMOLE [Concomitant]
     Route: 065
     Dates: start: 20110628
  6. BENDROFLUMETHIAZIDE [Concomitant]
     Route: 065
     Dates: start: 20110628
  7. DOXAZOSIN MESYLATE [Concomitant]
     Route: 065
     Dates: start: 20110628

REACTIONS (2)
  - MYALGIA [None]
  - FEELING ABNORMAL [None]
